FAERS Safety Report 8811992 (Version 1)
Quarter: 2012Q4

REPORT INFORMATION
  Report Type: 
  Country: GB (occurrence: GB)
  Receive Date: 20120927
  Receipt Date: 20120927
  Transmission Date: 20130627
  Serious: Yes (Other)
  Sender: FDA-Public Use
  Company Number: GB-TEVA-359172ISR

PATIENT
  Age: 53 Year
  Sex: Male
  Weight: 137 kg

DRUGS (12)
  1. TRIMETHOPRIM [Suspect]
  2. ASPIRIN [Concomitant]
     Dates: start: 20120523, end: 20120904
  3. ATENOLOL [Concomitant]
     Dates: start: 20120523, end: 20120904
  4. METFORMIN [Concomitant]
     Dates: start: 20120523, end: 20120904
  5. NICORANDIL [Concomitant]
     Dates: start: 20120523, end: 20120904
  6. OMEPRAZOLE [Concomitant]
     Dates: start: 20120523, end: 20120904
  7. RAMIPRIL [Concomitant]
     Dates: start: 20120523, end: 20120904
  8. SIMVASTATIN [Concomitant]
     Dates: start: 20120523, end: 20120904
  9. DICLOFENAC SODIUM [Concomitant]
     Dates: start: 20120620, end: 20120904
  10. NITROLINGUAL [Concomitant]
     Dates: start: 20120713, end: 20120904
  11. FLUCLOXACILLIN [Concomitant]
     Dates: start: 20120809, end: 20120816
  12. FLUCONAZOLE [Concomitant]
     Dates: start: 20120809, end: 20120816

REACTIONS (4)
  - Wheezing [Recovering/Resolving]
  - Cough [Recovering/Resolving]
  - Photosensitivity reaction [Recovering/Resolving]
  - Musculoskeletal stiffness [Recovering/Resolving]
